FAERS Safety Report 17683196 (Version 1)
Quarter: 2020Q2

REPORT INFORMATION
  Report Type: Spontaneous
  Country: CA (occurrence: CA)
  Receive Date: 20200420
  Receipt Date: 20200420
  Transmission Date: 20200714
  Serious: Yes (Death)
  Sender: FDA-Public Use
  Company Number: CA-ROCHE-2583980

PATIENT
  Age: 72 Year
  Sex: Male
  Weight: 68 kg

DRUGS (21)
  1. ESBRIET [Suspect]
     Active Substance: PIRFENIDONE
     Dosage: 4.0 DOSAGE FORMS
     Route: 048
  2. ESBRIET [Suspect]
     Active Substance: PIRFENIDONE
     Indication: IDIOPATHIC PULMONARY FIBROSIS
     Route: 048
  3. ESBRIET [Suspect]
     Active Substance: PIRFENIDONE
     Dosage: 8.0 DOSAGE FORMS
     Route: 048
  4. DABIGATRAN ETEXILATE MESILATE [Suspect]
     Active Substance: DABIGATRAN ETEXILATE MESYLATE
     Indication: PRODUCT USED FOR UNKNOWN INDICATION
     Route: 065
  5. AVAPRO [Concomitant]
     Active Substance: IRBESARTAN
     Indication: PRODUCT USED FOR UNKNOWN INDICATION
     Route: 065
  6. IRBESARTAN. [Concomitant]
     Active Substance: IRBESARTAN
     Indication: PRODUCT USED FOR UNKNOWN INDICATION
  7. LIPITOR [Concomitant]
     Active Substance: ATORVASTATIN CALCIUM
     Indication: PRODUCT USED FOR UNKNOWN INDICATION
  8. ESBRIET [Suspect]
     Active Substance: PIRFENIDONE
     Dosage: 5.0 DOSAGE FORMS
     Route: 048
  9. PANTOPRAZOLE [Suspect]
     Active Substance: PANTOPRAZOLE
     Indication: PRODUCT USED FOR UNKNOWN INDICATION
     Route: 065
  10. RABEPRAZOLE [Suspect]
     Active Substance: RABEPRAZOLE
     Indication: PRODUCT USED FOR UNKNOWN INDICATION
     Route: 065
  11. SERTRALINE HYDROCHLORIDE. [Suspect]
     Active Substance: SERTRALINE HYDROCHLORIDE
     Indication: PRODUCT USED FOR UNKNOWN INDICATION
     Route: 065
  12. ESBRIET [Suspect]
     Active Substance: PIRFENIDONE
     Route: 048
  13. ESBRIET [Suspect]
     Active Substance: PIRFENIDONE
     Route: 048
  14. BISOPROLOL [Concomitant]
     Active Substance: BISOPROLOL
     Indication: PRODUCT USED FOR UNKNOWN INDICATION
  15. COUMADIN [Concomitant]
     Active Substance: WARFARIN SODIUM
     Indication: PRODUCT USED FOR UNKNOWN INDICATION
  16. TECTA [Concomitant]
     Active Substance: PANTOPRAZOLE MAGNESIUM
     Indication: PRODUCT USED FOR UNKNOWN INDICATION
     Route: 065
  17. ESBRIET [Suspect]
     Active Substance: PIRFENIDONE
     Route: 048
  18. ACETYLSALICYLIC ACID [Concomitant]
     Active Substance: ASPIRIN
     Indication: PRODUCT USED FOR UNKNOWN INDICATION
  19. LASIX [Concomitant]
     Active Substance: FUROSEMIDE
     Indication: PRODUCT USED FOR UNKNOWN INDICATION
  20. WARFARIN [Concomitant]
     Active Substance: WARFARIN
     Indication: PRODUCT USED FOR UNKNOWN INDICATION
  21. ZANTAC [Concomitant]
     Active Substance: RANITIDINE HYDROCHLORIDE
     Indication: PRODUCT USED FOR UNKNOWN INDICATION

REACTIONS (34)
  - Rash [Fatal]
  - Sneezing [Fatal]
  - Ear discomfort [Fatal]
  - Flatulence [Fatal]
  - Pruritus [Fatal]
  - Rhinorrhoea [Fatal]
  - Fatigue [Fatal]
  - Nausea [Fatal]
  - Weight decreased [Fatal]
  - Abdominal pain [Fatal]
  - Diarrhoea [Fatal]
  - Gastrooesophageal reflux disease [Fatal]
  - Muscle strain [Fatal]
  - Oesophageal pain [Fatal]
  - Adverse drug reaction [Fatal]
  - Anorectal discomfort [Fatal]
  - Heart rate increased [Fatal]
  - Abdominal pain upper [Fatal]
  - Death [Fatal]
  - Pneumonia [Fatal]
  - Abdominal discomfort [Fatal]
  - Anxiety [Fatal]
  - Asthenia [Fatal]
  - Deafness [Fatal]
  - Dyspnoea exertional [Fatal]
  - Headache [Fatal]
  - Rectal haemorrhage [Fatal]
  - Blood pressure increased [Fatal]
  - Constipation [Fatal]
  - Decreased appetite [Fatal]
  - Dizziness [Fatal]
  - Dysgeusia [Fatal]
  - Gastrointestinal motility disorder [Fatal]
  - Haemochromatosis [Fatal]
